FAERS Safety Report 6645076-6 (Version None)
Quarter: 2010Q1

REPORT INFORMATION
  Report Type: 
  Country: None (occurrence: None)
  Receive Date: 20100317
  Receipt Date: 20091103
  Transmission Date: 20100710
  Serious: Yes (Hospitalization, Other)
  Sender: FDA-Public Use
  Company Number: 2009293473

PATIENT
  Sex: Female

DRUGS (2)
  1. HEPARIN [Suspect]
  2. WARFARIN SODIUM [Concomitant]

REACTIONS (3)
  - CEREBROVASCULAR ACCIDENT [None]
  - HEPARIN-INDUCED THROMBOCYTOPENIA [None]
  - SEPSIS [None]
